FAERS Safety Report 7302303-X (Version None)
Quarter: 2011Q1

REPORT INFORMATION
  Report Type: 
  Country: None (occurrence: None)
  Receive Date: 20110218
  Receipt Date: 20110207
  Transmission Date: 20110831
  Serious: Yes (Death, Hospitalization, Other)
  Sender: FDA-Public Use
  Company Number: JP-CELGENEUS-087-21880-10083087

PATIENT
  Sex: Male
  Weight: 52.5 kg

DRUGS (5)
  1. PLAVIX [Concomitant]
     Indication: ANGINA PECTORIS
     Route: 048
     Dates: start: 20100101, end: 20100909
  2. ASPIRIN [Concomitant]
     Indication: ANGINA PECTORIS
     Route: 048
     Dates: start: 20100101, end: 20100909
  3. LENADEX [Suspect]
     Indication: MULTIPLE MYELOMA
     Route: 048
     Dates: start: 20100820, end: 20100823
  4. REVLIMID [Suspect]
     Indication: MULTIPLE MYELOMA
     Route: 048
     Dates: start: 20100820, end: 20100826
  5. REVLIMID [Suspect]
     Route: 048
     Dates: start: 20100908, end: 20100909

REACTIONS (4)
  - NEUTROPENIA [None]
  - INFECTION [None]
  - THROMBOCYTOPENIA [None]
  - INTERSTITIAL LUNG DISEASE [None]
